FAERS Safety Report 5513143-6 (Version None)
Quarter: 2007Q4

REPORT INFORMATION
  Report Type: 
  Country: None (occurrence: None)
  Receive Date: 20071112
  Receipt Date: 20061004
  Transmission Date: 20080405
  Serious: Yes (Hospitalization)
  Sender: FDA-Public Use
  Company Number: US-BRISTOL-MYERS SQUIBB COMPANY-13530654

PATIENT
  Age: 20 Year
  Sex: Male

DRUGS (3)
  1. SUSTIVA [Suspect]
     Indication: HIV INFECTION
     Dates: start: 20060927, end: 20061004
  2. TRUVADA [Concomitant]
     Dates: start: 20060927
  3. ENSURE [Concomitant]

REACTIONS (2)
  - DIARRHOEA [None]
  - VOMITING [None]
